FAERS Safety Report 8788355 (Version 1)
Quarter: 2012Q4

REPORT INFORMATION
  Report Type: Report from Study
  Country: US (occurrence: US)
  Receive Date: 20120914
  Receipt Date: 20120914
  Transmission Date: 20130627
  Serious: No
  Sender: FDA-Public Use
  Company Number: US-VERTEX PHARMACEUTICAL INC.-AE-2012-011793

PATIENT
  Age: 62 Year
  Sex: Male
  Weight: 90.91 kg

DRUGS (7)
  1. INCIVEK [Suspect]
     Indication: HEPATITIS C
     Route: 048
  2. PEGASYS [Concomitant]
     Indication: HEPATITIS C
  3. RIBAPAK [Concomitant]
     Indication: HEPATITIS C
  4. MULTIVITAMIN [Concomitant]
  5. ADVIL [Concomitant]
  6. TYLENOL [Concomitant]
  7. GLIPIZIDE [Concomitant]

REACTIONS (1)
  - Rash [Unknown]
